FAERS Safety Report 24069675 (Version 1)
Quarter: 2024Q3

REPORT INFORMATION
  Report Type: Spontaneous
  Country: CN (occurrence: CN)
  Receive Date: 20240710
  Receipt Date: 20240710
  Transmission Date: 20241017
  Serious: No
  Sender: ROCHE
  Company Number: CN-ROCHE-3482512

PATIENT
  Age: 59 Year
  Sex: Female

DRUGS (10)
  1. ALECTINIB [Suspect]
     Active Substance: ALECTINIB
     Indication: Lung cancer metastatic
     Dosage: DF MEANS TABLET, ONCE IN THE MORNING AND ONCE IN THE EVENING
     Route: 048
  2. ALECTINIB [Suspect]
     Active Substance: ALECTINIB
     Dosage: DF MEANS TABLET, ONCE IN THE MORNING AND ONCE IN THE EVENING.
     Route: 048
  3. BAI SHAO [Concomitant]
     Indication: Lung cancer metastatic
     Route: 048
  4. GUI ZHI [Concomitant]
     Route: 048
  5. SHENG JIANG [Concomitant]
     Indication: Lung cancer metastatic
     Route: 048
  6. JIN QIAN CAO [Concomitant]
     Indication: Lung cancer metastatic
     Route: 048
  7. GAN JIANG [Concomitant]
     Indication: Lung cancer metastatic
     Route: 048
  8. BAI SHU [CINNAMOMUM CAMPHORA LEAF WITH TWIG OIL;CINNAMOMUM SPP. OIL;EU [Concomitant]
     Indication: Lung cancer metastatic
     Route: 048
  9. DANG GUI [Concomitant]
     Indication: Lung cancer metastatic
     Route: 048
  10. ZHI GAN CAO [Concomitant]
     Indication: Lung cancer metastatic
     Route: 048

REACTIONS (12)
  - Blood bilirubin increased [Recovering/Resolving]
  - Hepatic steatosis [Unknown]
  - Heart rate decreased [Unknown]
  - Peripheral coldness [Recovering/Resolving]
  - Weight increased [Unknown]
  - Sleep disorder [Unknown]
  - Palpitations [Unknown]
  - Motion sickness [Unknown]
  - Restlessness [Unknown]
  - Musculoskeletal chest pain [Recovered/Resolved]
  - Headache [Recovered/Resolved]
  - Blepharospasm [Unknown]
